FAERS Safety Report 19262399 (Version 1)
Quarter: 2021Q2

REPORT INFORMATION
  Report Type: Spontaneous
  Country: LT (occurrence: LT)
  Receive Date: 20210516
  Receipt Date: 20210516
  Transmission Date: 20210717
  Serious: Yes (Hospitalization, Other)
  Sender: FDA-Public Use
  Company Number: LT-SA-2021SA160672

PATIENT
  Age: 61 Year
  Sex: Female

DRUGS (1)
  1. AUBAGIO [Suspect]
     Active Substance: TERIFLUNOMIDE
     Dosage: 14 MG, QD
     Dates: start: 20190319

REACTIONS (7)
  - SARS-CoV-2 test positive [Recovered/Resolved]
  - Multiple sclerosis [Recovered/Resolved]
  - COVID-19 [Recovered/Resolved]
  - Acute respiratory failure [Recovered/Resolved]
  - Progesterone receptor assay positive [Recovered/Resolved]
  - Pneumonia viral [Recovered/Resolved]
  - White blood cell count decreased [Recovered/Resolved]

NARRATIVE: CASE EVENT DATE: 20201228
